FAERS Safety Report 7332473-9 (Version None)
Quarter: 2011Q1

REPORT INFORMATION
  Report Type: 
  Country: None (occurrence: None)
  Receive Date: 20110304
  Receipt Date: 20110224
  Transmission Date: 20110831
  Serious: Yes (Other)
  Sender: FDA-Public Use
  Company Number: CH-BRISTOL-MYERS SQUIBB COMPANY-15570534

PATIENT
  Age: 42 Year
  Sex: Male
  Weight: 64 kg

DRUGS (9)
  1. BISOPROLOL FUMARATE AND HYDROCHLOROTHIAZIDE [Concomitant]
     Indication: HYPERTENSION
     Dosage: BISOPROLOL 5MG HCTZ 12.5MG
     Route: 048
     Dates: start: 20061130
  2. BISOPROLOL FUMARATE AND HYDROCHLOROTHIAZIDE [Concomitant]
     Indication: NEPHROPATHY
     Dosage: BISOPROLOL 5MG HCTZ 12.5MG
     Route: 048
     Dates: start: 20061130
  3. VIDEX [Interacting]
     Indication: HIV INFECTION
     Route: 048
     Dates: start: 20030703, end: 20081015
  4. KALETRA [Interacting]
     Indication: HIV INFECTION
     Route: 048
     Dates: start: 20081115
  5. VIREAD [Interacting]
     Indication: HIV INFECTION
     Route: 048
     Dates: start: 20030703, end: 20081115
  6. TRUVADA [Interacting]
     Indication: HIV INFECTION
     Route: 048
     Dates: start: 20081115, end: 20110202
  7. COZAAR [Concomitant]
     Indication: HYPERTENSION
     Route: 048
     Dates: start: 20050602
  8. REYATAZ [Suspect]
     Indication: HIV INFECTION
     Route: 048
     Dates: start: 20051208, end: 20080815
  9. NORVIR [Interacting]
     Indication: HIV INFECTION
     Route: 048
     Dates: start: 20051208, end: 20081115

REACTIONS (3)
  - FANCONI SYNDROME [None]
  - MITOCHONDRIAL TOXICITY [None]
  - DRUG INTERACTION [None]
